FAERS Safety Report 25220585 (Version 1)
Quarter: 2025Q2

REPORT INFORMATION
  Report Type: Spontaneous
  Country: US (occurrence: None)
  Receive Date: 20250419
  Receipt Date: 20250419
  Transmission Date: 20250717
  Serious: Yes (Other)
  Sender: FDA-CTU
  Company Number: None

PATIENT
  Age: 67 Year
  Sex: Male
  Weight: 71.1 kg

DRUGS (5)
  1. IBUPROFEN [Suspect]
     Active Substance: IBUPROFEN
     Indication: Pain
     Dosage: 1 TABLET 3 TIMES A DAY ORAL
     Route: 048
     Dates: start: 20250408, end: 20250417
  2. IBUPROFEN [Suspect]
     Active Substance: IBUPROFEN
     Indication: Swelling
  3. TIZANIDINE HYDROCHLORIDE [Suspect]
     Active Substance: TIZANIDINE HYDROCHLORIDE
  4. VITAMINS [Concomitant]
     Active Substance: VITAMINS
  5. Ashawaganda herbal tablet [Concomitant]

REACTIONS (4)
  - Urinary retention [None]
  - Micturition urgency [None]
  - Constipation [None]
  - Abdominal discomfort [None]

NARRATIVE: CASE EVENT DATE: 20250418
